FAERS Safety Report 21537463 (Version 3)
Quarter: 2022Q4

REPORT INFORMATION
  Report Type: Spontaneous
  Country: AU (occurrence: AU)
  Receive Date: 20221101
  Receipt Date: 20221107
  Transmission Date: 20230112
  Serious: Yes (Hospitalization)
  Sender: FDA-Public Use
  Company Number: AU-BEIGENE AUS PTY LTD-BGN-2022-010251

PATIENT
  Age: 72 Year
  Sex: Male
  Weight: 98 kg

DRUGS (21)
  1. AZACITIDINE [Suspect]
     Active Substance: AZACITIDINE
     Indication: Acute myeloid leukaemia
     Dosage: 161.2 MILLIGRAM, QD
     Route: 042
     Dates: start: 20220502
  2. AZACITIDINE [Suspect]
     Active Substance: AZACITIDINE
     Dosage: 161.2 MILLIGRAM, QD
     Route: 042
     Dates: start: 20221006, end: 20221006
  3. BGB-11417 [Suspect]
     Active Substance: BGB-11417
     Indication: Acute myeloid leukaemia
     Dosage: 20 MILLIGRAM, QD
     Route: 048
     Dates: start: 20220502
  4. BGB-11417 [Suspect]
     Active Substance: BGB-11417
     Dosage: 160 MILLIGRAM, QD
     Route: 048
     Dates: start: 20220928, end: 20221007
  5. VALACYCLOVIR [Concomitant]
     Active Substance: VALACYCLOVIR HYDROCHLORIDE
     Indication: Antiviral prophylaxis
     Route: 048
     Dates: start: 20191128
  6. AMOXICILLIN [Concomitant]
     Active Substance: AMOXICILLIN
     Indication: Upper respiratory tract infection
     Route: 048
     Dates: start: 20220830
  7. ENOXAPARIN [Concomitant]
     Active Substance: ENOXAPARIN
     Indication: Thrombosis prophylaxis
     Dosage: UNK
     Route: 058
     Dates: start: 20220920, end: 20220930
  8. FUROSEMIDE [Concomitant]
     Active Substance: FUROSEMIDE
     Indication: Hypervolaemia
     Dosage: UNK
     Route: 048
     Dates: start: 20220922, end: 20221005
  9. FUROSEMIDE [Concomitant]
     Active Substance: FUROSEMIDE
     Dosage: UNK
     Route: 042
     Dates: start: 20221016, end: 20221016
  10. FUROSEMIDE [Concomitant]
     Active Substance: FUROSEMIDE
     Dosage: UNK
     Route: 048
     Dates: start: 20221017
  11. DUTASTERIDE\TAMSULOSIN HYDROCHLORIDE [Concomitant]
     Active Substance: DUTASTERIDE\TAMSULOSIN HYDROCHLORIDE
     Indication: Benign prostatic hyperplasia
     Route: 065
     Dates: start: 2017
  12. POTASSIUM CHLORIDE [Concomitant]
     Active Substance: POTASSIUM CHLORIDE
     Indication: Prophylaxis
     Dosage: UNK
     Route: 048
     Dates: start: 20220921, end: 20221005
  13. TAPENTADOL [Concomitant]
     Active Substance: TAPENTADOL
     Indication: Diverticulitis
     Dosage: UNK
     Route: 048
     Dates: start: 20220926, end: 20220927
  14. TAPENTADOL [Concomitant]
     Active Substance: TAPENTADOL
     Dosage: UNK
     Route: 048
     Dates: start: 20221005, end: 20221005
  15. TEMAZEPAM [Concomitant]
     Active Substance: TEMAZEPAM
     Indication: Insomnia
     Dosage: UNK
     Route: 048
     Dates: start: 20220921, end: 20221005
  16. DOCUSATE SODIUM\SENNOSIDES A AND B [Concomitant]
     Active Substance: DOCUSATE SODIUM\SENNOSIDES A AND B
     Indication: Constipation
     Dosage: UNK
     Route: 065
     Dates: start: 20220928, end: 20220928
  17. DOCUSATE SODIUM\SENNOSIDES A AND B [Concomitant]
     Active Substance: DOCUSATE SODIUM\SENNOSIDES A AND B
     Dosage: UNK
     Route: 065
     Dates: start: 20221001, end: 20221001
  18. LACTULOSE [Concomitant]
     Active Substance: LACTULOSE
     Indication: Constipation
     Dosage: UNK
     Route: 065
     Dates: start: 20220929, end: 20221001
  19. CHOLECALCIFEROL [Concomitant]
     Active Substance: CHOLECALCIFEROL
     Indication: Mineral supplementation
     Route: 065
     Dates: start: 201908
  20. ALLOPURINOL [Concomitant]
     Active Substance: ALLOPURINOL
     Indication: Prophylaxis
     Route: 065
     Dates: start: 20220429
  21. MOVICOL [Concomitant]
     Active Substance: POLYETHYLENE GLYCOL 3350\POTASSIUM CHLORIDE\SODIUM BICARBONATE\SODIUM CHLORIDE

REACTIONS (1)
  - Leukocytosis [Recovered/Resolved]

NARRATIVE: CASE EVENT DATE: 20221024
